FAERS Safety Report 9311788 (Version 1)
Quarter: 2013Q2

REPORT INFORMATION
  Report Type: Spontaneous
  Country: US (occurrence: US)
  Receive Date: 20130528
  Receipt Date: 20130528
  Transmission Date: 20140414
  Serious: Yes (Hospitalization)
  Sender: FDA-Public Use
  Company Number: PHHY2013US051062

PATIENT
  Age: 37 Year
  Sex: Female

DRUGS (1)
  1. ILOPERIDONE [Suspect]
     Dosage: 1 MG, AT BEDTIME
     Route: 048

REACTIONS (8)
  - Neuroleptic malignant syndrome [Unknown]
  - Unresponsive to stimuli [Unknown]
  - Musculoskeletal stiffness [Unknown]
  - Mutism [Unknown]
  - Hyperhidrosis [Unknown]
  - Muscle rigidity [Recovered/Resolved]
  - Tachycardia [Recovering/Resolving]
  - Catatonia [Recovered/Resolved]
